FAERS Safety Report 21059805 (Version 4)
Quarter: 2024Q1

REPORT INFORMATION
  Report Type: Spontaneous
  Country: US (occurrence: US)
  Receive Date: 20220708
  Receipt Date: 20240208
  Transmission Date: 20240410
  Serious: No
  Sender: FDA-Public Use
  Company Number: US-SA-SAC20220628001439

PATIENT
  Age: 37 Year
  Sex: Female

DRUGS (1)
  1. IMIGLUCERASE [Suspect]
     Active Substance: IMIGLUCERASE
     Indication: Gaucher^s disease
     Dosage: 3600 U, QOW
     Route: 042
     Dates: start: 202104, end: 202401

REACTIONS (4)
  - Injection site bruising [Unknown]
  - Wound [Unknown]
  - Poor venous access [Unknown]
  - Illness [Unknown]

NARRATIVE: CASE EVENT DATE: 20220501
